FAERS Safety Report 8845926 (Version 2)
Quarter: 2014Q2

REPORT INFORMATION
  Report Type: Report from Study
  Country: US (occurrence: US)
  Receive Date: 20121017
  Receipt Date: 20140623
  Transmission Date: 20141212
  Serious: Yes (Death, Hospitalization, Other)
  Sender: FDA-Public Use
  Company Number: US-ROCHE-1143669

PATIENT
  Sex: 0

DRUGS (4)
  1. PEG-INTERFERON ALFA 2A [Suspect]
     Indication: HEPATITIS C
     Route: 065
  2. RIBAVIRIN [Suspect]
     Indication: HEPATITIS C
     Route: 065
  3. TELAPREVIR [Suspect]
     Indication: HEPATITIS C
     Route: 065
  4. BOCEPREVIR [Suspect]
     Indication: HEPATITIS C
     Route: 065

REACTIONS (12)
  - Sepsis [Fatal]
  - Biliary tract disorder [Fatal]
  - Hepatic failure [Fatal]
  - Optic neuritis [Unknown]
  - Rash [Unknown]
  - Ascites [Unknown]
  - Bleeding varicose vein [Unknown]
  - Cholecystitis [Unknown]
  - Anaemia [Unknown]
  - Vomiting [Unknown]
  - Dehydration [Unknown]
  - Oropharyngeal candidiasis [Unknown]
